FAERS Safety Report 15467844 (Version 1)
Quarter: 2018Q4

REPORT INFORMATION
  Report Type: Spontaneous
  Country: FR (occurrence: FR)
  Receive Date: 20181005
  Receipt Date: 20181005
  Transmission Date: 20190204
  Serious: Yes (Hospitalization)
  Sender: FDA-Public Use
  Company Number: FR-BIOVITRUM-2018FR1133

PATIENT
  Age: 65 Year
  Sex: Male

DRUGS (1)
  1. KINERET [Suspect]
     Active Substance: ANAKINRA
     Indication: POLYARTERITIS NODOSA
     Route: 058
     Dates: start: 201803, end: 201805

REACTIONS (1)
  - Septal panniculitis [Not Recovered/Not Resolved]

NARRATIVE: CASE EVENT DATE: 201805
